FAERS Safety Report 8074550-3 (Version None)
Quarter: 2012Q1

REPORT INFORMATION
  Report Type: 
  Country: None (occurrence: None)
  Receive Date: 20120126
  Receipt Date: 20120120
  Transmission Date: 20120608
  Serious: Yes (Death, Hospitalization)
  Sender: FDA-Public Use
  Company Number: US-ELI_LILLY_AND_COMPANY-US201201006107

PATIENT
  Sex: Male

DRUGS (1)
  1. GEMZAR [Suspect]
     Indication: LUNG NEOPLASM MALIGNANT
     Dosage: 1820 MG, 2 WEEKS ON, 1 WEEK OFF
     Route: 042
     Dates: start: 20110120, end: 20110617

REACTIONS (3)
  - DEATH [None]
  - LABORATORY TEST ABNORMAL [None]
  - ASCITES [None]
